FAERS Safety Report 7112364-9 (Version None)
Quarter: 2010Q4

REPORT INFORMATION
  Report Type: 
  Country: None (occurrence: None)
  Receive Date: 20101119
  Receipt Date: 20100913
  Transmission Date: 20110411
  Serious: No
  Sender: FDA-Public Use
  Company Number: A0880858A

PATIENT
  Age: 80 Year
  Sex: Male

DRUGS (7)
  1. AVODART [Suspect]
     Indication: BENIGN PROSTATIC HYPERPLASIA
     Dosage: 1CAP PER DAY
     Route: 048
     Dates: start: 20100719
  2. GLYBURIDE [Concomitant]
  3. COUMADIN [Concomitant]
  4. BLOOD PRESSURE MEDICATION [Concomitant]
  5. KLOR-CON [Concomitant]
  6. FUROSEMIDE [Concomitant]
  7. VYTORIN [Concomitant]

REACTIONS (3)
  - MADAROSIS [None]
  - RASH MACULAR [None]
  - RASH PRURITIC [None]
